FAERS Safety Report 22243925 (Version 2)
Quarter: 2023Q2

REPORT INFORMATION
  Report Type: Spontaneous
  Country: DK (occurrence: DK)
  Receive Date: 20230424
  Receipt Date: 20230518
  Transmission Date: 20230722
  Serious: Yes (Hospitalization, Other)
  Sender: FDA-Public Use
  Company Number: DK-NOVOPROD-1036721

PATIENT
  Age: 58 Year
  Sex: Female
  Weight: 98.8 kg

DRUGS (5)
  1. WEGOVY [Suspect]
     Active Substance: SEMAGLUTIDE
     Indication: Overweight
     Dosage: UNK
     Route: 058
     Dates: start: 20230127, end: 20230206
  2. EUTHYROX [Concomitant]
     Active Substance: LEVOTHYROXINE SODIUM
     Indication: Metabolic disorder
     Dosage: 100.00 MG, QD
     Route: 048
     Dates: start: 2020
  3. PANTOPRAZOLE [Concomitant]
     Active Substance: PANTOPRAZOLE
     Indication: Gastrointestinal disorder
     Dosage: 20-40 MG ONCE A DAY
     Route: 048
     Dates: start: 20221221
  4. PLAVIX [Concomitant]
     Active Substance: CLOPIDOGREL BISULFATE
     Indication: Anticoagulant therapy
     Dosage: 75.00 MG, QD
     Route: 048
     Dates: start: 20220426
  5. ATORVASTATIN [Concomitant]
     Active Substance: ATORVASTATIN
     Indication: Blood cholesterol abnormal
     Dosage: 40.00 MG
     Route: 048
     Dates: start: 20220321

REACTIONS (3)
  - Cough [Unknown]
  - Muscle rupture [Unknown]
  - Pancreatitis [Unknown]

NARRATIVE: CASE EVENT DATE: 20230101
